FAERS Safety Report 25350065 (Version 2)
Quarter: 2025Q2

REPORT INFORMATION
  Report Type: Spontaneous
  Country: FR (occurrence: FR)
  Receive Date: 20250523
  Receipt Date: 20250619
  Transmission Date: 20250716
  Serious: Yes (Hospitalization, Other)
  Sender: IDORSIA PHARMACEUTICALS
  Company Number: FR-IDORSIA-010342-2025-FR

PATIENT
  Age: 59 Year
  Sex: Male

DRUGS (2)
  1. QUVIVIQ [Interacting]
     Active Substance: DARIDOREXANT
     Indication: Insomnia
     Route: 065
     Dates: start: 20250417, end: 20250503
  2. FLUINDIONE [Interacting]
     Active Substance: FLUINDIONE
     Indication: Aortic valve disease
     Route: 065
     Dates: start: 199812

REACTIONS (3)
  - Haematuria [Recovered/Resolved]
  - International normalised ratio increased [Recovered/Resolved]
  - Drug interaction [Unknown]

NARRATIVE: CASE EVENT DATE: 20250430
